FAERS Safety Report 5206567-8 (Version None)
Quarter: 2007Q1

REPORT INFORMATION
  Report Type: 
  Country: None (occurrence: None)
  Receive Date: 20070109
  Receipt Date: 20061229
  Transmission Date: 20070707
  Serious: Yes (Hospitalization)
  Sender: FDA-Public Use
  Company Number: MEDI-0005217

PATIENT
  Age: 50 Year
  Sex: Male
  Weight: 95.2554 kg

DRUGS (5)
  1. ETHYOL [Suspect]
     Indication: NEOPLASM MALIGNANT
     Dosage: 500 MG, 5 IN 5 D, SUBCUTANEOUS
     Route: 058
     Dates: start: 20061030, end: 20061103
  2. CISPLATIN [Concomitant]
  3. RADIATION THERAPY [Concomitant]
  4. KYTRIL [Concomitant]
  5. CARBOPLATIN [Concomitant]

REACTIONS (8)
  - DEHYDRATION [None]
  - HAEMOPTYSIS [None]
  - MUCOSAL INFLAMMATION [None]
  - ODYNOPHAGIA [None]
  - ORAL INTAKE REDUCED [None]
  - RENAL FAILURE [None]
  - SINUS CONGESTION [None]
  - WEIGHT DECREASED [None]
